FAERS Safety Report 6416230-3 (Version None)
Quarter: 2009Q4

REPORT INFORMATION
  Report Type: 
  Country: None (occurrence: None)
  Receive Date: 20091027
  Receipt Date: 20091021
  Transmission Date: 20100525
  Serious: Yes (Other)
  Sender: FDA-Public Use
  Company Number: FR-TEVA-213199ISR

PATIENT
  Sex: Male

DRUGS (5)
  1. COPAXONE [Suspect]
     Indication: MULTIPLE SCLEROSIS
     Route: 058
     Dates: start: 20040101
  2. ESOMEPRAZOLE MAGNESIUM [Concomitant]
  3. POTASSIUM CHLORIDE [Concomitant]
  4. TRAMADOL HCL [Concomitant]
  5. GABAPENTIN [Concomitant]

REACTIONS (2)
  - ABDOMINAL PAIN [None]
  - OESOPHAGEAL CARCINOMA [None]
